FAERS Safety Report 5876838-0 (Version None)
Quarter: 2008Q3

REPORT INFORMATION
  Report Type: 
  Country: None (occurrence: None)
  Receive Date: 20080910
  Receipt Date: 20080905
  Transmission Date: 20090109
  Serious: Yes (Other)
  Sender: FDA-Public Use
  Company Number: FI-WYE-G02132708

PATIENT

DRUGS (1)
  1. TORISEL [Suspect]
     Dosage: UNSPECIFIED

REACTIONS (2)
  - SEPSIS [None]
  - STOMATITIS [None]
